FAERS Safety Report 15239525 (Version 1)
Quarter: 2018Q3

REPORT INFORMATION
  Report Type: Spontaneous
  Country: US (occurrence: US)
  Receive Date: 20180803
  Receipt Date: 20180803
  Transmission Date: 20181010
  Serious: No
  Sender: FDA-Public Use
  Company Number: US-PFIZER INC-2018309432

PATIENT
  Sex: Female

DRUGS (9)
  1. CECLOR [Suspect]
     Active Substance: CEFACLOR
     Dosage: UNK
  2. ATORVASTATIN CALCIUM. [Suspect]
     Active Substance: ATORVASTATIN CALCIUM
     Dosage: UNK
  3. LORABID [Suspect]
     Active Substance: LORACARBEF
     Dosage: UNK
  4. LORATADINE. [Suspect]
     Active Substance: LORATADINE
     Dosage: UNK
  5. BACTRIM [Suspect]
     Active Substance: SULFAMETHOXAZOLE\TRIMETHOPRIM
     Dosage: UNK
  6. NORFLEX [Suspect]
     Active Substance: ORPHENADRINE CITRATE
     Dosage: UNK
  7. FLEXERIL [Suspect]
     Active Substance: CYCLOBENZAPRINE HYDROCHLORIDE
     Dosage: UNK
  8. CELEBREX [Suspect]
     Active Substance: CELECOXIB
     Dosage: UNK
  9. NITROFURANTOIN. [Suspect]
     Active Substance: NITROFURANTOIN
     Dosage: UNK

REACTIONS (1)
  - Drug hypersensitivity [Unknown]
